FAERS Safety Report 19744682 (Version 3)
Quarter: 2021Q4

REPORT INFORMATION
  Report Type: Report from Study
  Country: NL (occurrence: NL)
  Receive Date: 20210825
  Receipt Date: 20211223
  Transmission Date: 20220304
  Serious: Yes (Hospitalization, Other)
  Sender: FDA-Public Use
  Company Number: NL-ALNYLAM PHARMACEUTICALS, INC.-ALN-2020-000609

PATIENT

DRUGS (36)
  1. LISINOPRIL [Suspect]
     Active Substance: LISINOPRIL
     Indication: Product used for unknown indication
     Dosage: 5 MILLIGRAM, QD
     Route: 065
     Dates: start: 20201228, end: 20210111
  2. AMLODIPINE [Suspect]
     Active Substance: AMLODIPINE BESYLATE
     Indication: Hypertension
     Dosage: 10 MILLIGRAM, QD
     Route: 048
     Dates: start: 20191126, end: 20201228
  3. PROMETHAZINE [Suspect]
     Active Substance: PROMETHAZINE HYDROCHLORIDE
     Indication: Cough
     Dosage: UNK
     Route: 065
  4. GIVLAARI [Suspect]
     Active Substance: GIVOSIRAN SODIUM
     Indication: Porphyria acute
     Dosage: 178.8 MILLIGRAM
     Route: 058
     Dates: start: 20210517
  5. GIVLAARI [Suspect]
     Active Substance: GIVOSIRAN SODIUM
     Dosage: 178.5 MILLIGRAM, SINGLE
     Route: 058
     Dates: start: 20200615, end: 20200615
  6. GIVLAARI [Suspect]
     Active Substance: GIVOSIRAN SODIUM
     Dosage: 179.3 MILLIGRAM, SINGLE (WEIGHT 72.8 KG)
     Route: 058
     Dates: start: 20210322, end: 20210322
  7. GIVLAARI [Suspect]
     Active Substance: GIVOSIRAN SODIUM
     Dosage: 180 MG, SINGLE, MONTHLY, PATIENT?S WEIGHT 75.2 KG
     Route: 058
     Dates: start: 20211101
  8. GIVLAARI [Suspect]
     Active Substance: GIVOSIRAN SODIUM
     Dosage: 179.5 MILLIGRAM, MONTHLY
     Route: 058
     Dates: start: 20200713
  9. GIVLAARI [Suspect]
     Active Substance: GIVOSIRAN SODIUM
     Dosage: 182 MILLIGRAM, SINGLE (WEIGHT 71.5 KG)
     Dates: start: 20210419, end: 20210419
  10. GIVLAARI [Suspect]
     Active Substance: GIVOSIRAN SODIUM
     Dosage: 180.3 MG, SINGLE, MONTLY, PATIENT?S WEIGHT 73.2 KG
     Route: 058
     Dates: start: 20210621
  11. GIVLAARI [Suspect]
     Active Substance: GIVOSIRAN SODIUM
     Dosage: 186.5 MILLIGRAM, MONTHLY
     Route: 058
  12. GIVLAARI [Suspect]
     Active Substance: GIVOSIRAN SODIUM
     Dosage: 180 MG, SINGLE, MONTHLY, PATIENT?S WEIGHT 72.1 KG
     Route: 058
     Dates: start: 20210803
  13. GIVLAARI [Suspect]
     Active Substance: GIVOSIRAN SODIUM
     Dosage: 84 MILLIGRAM, SINGLE; WEIGHT 74.5KG
     Route: 058
     Dates: start: 20201228, end: 20201228
  14. GIVLAARI [Suspect]
     Active Substance: GIVOSIRAN SODIUM
     Dosage: 186.3 MILLIGRAM, MONTHLY
     Route: 058
     Dates: start: 20201130
  15. GIVLAARI [Suspect]
     Active Substance: GIVOSIRAN SODIUM
     Dosage: 181.5 MILLIGRAM, MONTHLY
     Route: 058
     Dates: start: 20201005
  16. GIVLAARI [Suspect]
     Active Substance: GIVOSIRAN SODIUM
     Dosage: 182.5 MILLIGRAM, SINGLE; WEIGHT: 71.7 KG
     Route: 058
     Dates: start: 20210222, end: 20210222
  17. GIVLAARI [Suspect]
     Active Substance: GIVOSIRAN SODIUM
     Dosage: 178.25 MILLIGRAM, SINGLE
     Route: 058
     Dates: start: 20200420, end: 20200420
  18. GIVLAARI [Suspect]
     Active Substance: GIVOSIRAN SODIUM
     Dosage: 173.5 MILLIGRAM, SINGLE
     Route: 058
     Dates: start: 20200518, end: 20200518
  19. GIVLAARI [Suspect]
     Active Substance: GIVOSIRAN SODIUM
     Dosage: 186.3 MILLIGRAM, SINGLE; WEIGHT 73.0 KG
     Route: 058
     Dates: start: 20210125, end: 20210125
  20. GIVLAARI [Suspect]
     Active Substance: GIVOSIRAN SODIUM
     Dosage: 180 MG, SINGLE, MONTHLY, PATIENT?S WEIGHT 73.0 KG
     Route: 058
     Dates: start: 20210913
  21. DEFERASIROX [Concomitant]
     Active Substance: DEFERASIROX
     Indication: Iron overload
     Dosage: 720 MILLIGRAM, QD
     Route: 048
     Dates: start: 20191209, end: 20200709
  22. DEFERASIROX [Concomitant]
     Active Substance: DEFERASIROX
     Dosage: 360 MILLIGRAM, QD
     Route: 048
     Dates: start: 20200709
  23. OMEPRAZOLE [Concomitant]
     Active Substance: OMEPRAZOLE
     Indication: Reflux gastritis
     Dosage: 20 MILLIGRAM, BID
     Route: 048
     Dates: start: 20191106, end: 20200622
  24. OMEPRAZOLE [Concomitant]
     Active Substance: OMEPRAZOLE
     Dosage: 20 MILLIGRAM, QD
     Route: 048
     Dates: start: 20200811, end: 20210222
  25. OMEPRAZOLE [Concomitant]
     Active Substance: OMEPRAZOLE
     Dosage: 40 MILLIGRAM
     Route: 048
     Dates: start: 20200622, end: 20200811
  26. OMEPRAZOLE [Concomitant]
     Active Substance: OMEPRAZOLE
     Dosage: 20 MILLIGRAM, BID
     Route: 048
     Dates: start: 20210222
  27. MOVICOL [Concomitant]
     Active Substance: POLYETHYLENE GLYCOL 3350\POTASSIUM CHLORIDE\SODIUM BICARBONATE\SODIUM CHLORIDE
     Indication: Constipation
     Dosage: 13.8 GRAM, QD
     Route: 048
  28. METOPROLOL [Concomitant]
     Active Substance: METOPROLOL
     Indication: Hypertension
     Dosage: 100 MILLIGRAM, QD
     Route: 048
     Dates: start: 20200715
  29. METOPROLOL [Concomitant]
     Active Substance: METOPROLOL
     Dosage: 50 MILLIGRAM
     Route: 048
     Dates: start: 20191209, end: 20200715
  30. METOPROLOL [Concomitant]
     Active Substance: METOPROLOL
     Dosage: 100 MILLIGRAM
     Route: 048
     Dates: start: 20210111
  31. METOPROLOL [Concomitant]
     Active Substance: METOPROLOL
     Dosage: 200 MILLIGRAM, QD
     Route: 048
     Dates: start: 20210913
  32. HYDROXYUREA [Concomitant]
     Active Substance: HYDROXYUREA
     Indication: Porphyria acute
     Dosage: 1500 MILLIGRAM
     Route: 048
     Dates: start: 20200723
  33. HYDROXYUREA [Concomitant]
     Active Substance: HYDROXYUREA
     Dosage: 1000 MILLIGRAM
     Route: 048
     Dates: start: 20191119, end: 20200723
  34. HYDROXYUREA [Concomitant]
     Active Substance: HYDROXYUREA
     Dosage: 500 MILLIGRAM, QD
     Route: 048
     Dates: start: 20210506
  35. HYDROXYUREA [Concomitant]
     Active Substance: HYDROXYUREA
     Dosage: 1000 MILLIGRAM, QD
     Route: 048
     Dates: start: 20210304, end: 20210311
  36. TERIPARATIDE [Concomitant]
     Active Substance: TERIPARATIDE
     Indication: Osteoporosis
     Dosage: 20 MICROGRAM, QD, FOT THE 24 MONTHS
     Dates: start: 202102

REACTIONS (30)
  - Abdominal pain [Not Recovered/Not Resolved]
  - Cough [Recovered/Resolved]
  - Ear pain [Recovered/Resolved]
  - Vomiting [Not Recovered/Not Resolved]
  - Pain in extremity [Recovered/Resolved]
  - Somnolence [Recovered/Resolved]
  - Fatigue [Recovered/Resolved]
  - Nausea [Recovered/Resolved]
  - Platelet count decreased [Recovered/Resolved]
  - Leukopenia [Recovered/Resolved]
  - Respiration abnormal [Not Recovered/Not Resolved]
  - Burning sensation [Recovered/Resolved]
  - Dyspepsia [Recovered/Resolved]
  - Pain in jaw [Recovered/Resolved]
  - Paraesthesia [Not Recovered/Not Resolved]
  - Injection site erythema [Recovered/Resolved]
  - Rash [Not Recovered/Not Resolved]
  - Oedema peripheral [Recovered/Resolved]
  - Malaise [Recovered/Resolved]
  - Injection site pain [Recovered/Resolved]
  - Renal failure [Recovered/Resolved]
  - Mouth ulceration [Recovered/Resolved]
  - Aspiration [Not Recovered/Not Resolved]
  - Urine delta aminolevulinate increased [Not Recovered/Not Resolved]
  - Influenza [Recovered/Resolved]
  - Anaemia [Recovered/Resolved]
  - Porphyria acute [Not Recovered/Not Resolved]
  - Blood potassium increased [Not Recovered/Not Resolved]
  - Arthralgia [Recovered/Resolved]
  - Oral pain [Recovered/Resolved]

NARRATIVE: CASE EVENT DATE: 20200323
